FAERS Safety Report 7717607-6 (Version None)
Quarter: 2011Q3

REPORT INFORMATION
  Report Type: 
  Country: None (occurrence: None)
  Receive Date: 20110830
  Receipt Date: 20110824
  Transmission Date: 20111222
  Serious: Yes (Hospitalization, Other)
  Sender: FDA-Public Use
  Company Number: JP-BRISTOL-MYERS SQUIBB COMPANY-15945181

PATIENT
  Age: 60 Year
  Sex: Male
  Weight: 70 kg

DRUGS (7)
  1. SAXAGLIPTIN [Suspect]
     Indication: TYPE 2 DIABETES MELLITUS
     Dosage: TABS
     Route: 048
     Dates: start: 20100812, end: 20110727
  2. LIVALO [Concomitant]
     Dosage: TAB
     Dates: start: 20090402, end: 20110727
  3. SELBEX [Concomitant]
     Dosage: GRANULES
     Dates: start: 20110727, end: 20110728
  4. PLETAL [Concomitant]
     Dosage: ORODISPERSIBLE TABLET,27JUL2011
     Dates: start: 20100811
  5. AMARYL [Concomitant]
     Dosage: TAB
     Dates: start: 20100508, end: 20110727
  6. FAMOTIDINE [Concomitant]
     Dosage: TABLET
     Dates: start: 20110727, end: 20110728
  7. MOTILIUM [Concomitant]
     Dosage: TABLET
     Dates: start: 20110727, end: 20110728

REACTIONS (1)
  - CHOLECYSTITIS ACUTE [None]
